FAERS Safety Report 20056329 (Version 4)
Quarter: 2021Q4

REPORT INFORMATION
  Report Type: Report from Study
  Country: GB (occurrence: GB)
  Receive Date: 20211111
  Receipt Date: 20211208
  Transmission Date: 20220303
  Serious: Yes (Hospitalization, Other)
  Sender: FDA-Public Use
  Company Number: GB-BRISTOL-MYERS SQUIBB COMPANY-BMS-2021-116882

PATIENT
  Age: 59 Year
  Sex: Male
  Weight: 85.5 kg

DRUGS (2)
  1. NIVOLUMAB [Suspect]
     Active Substance: NIVOLUMAB
     Indication: Colorectal cancer
     Dosage: 480 MILLIGRAM
     Route: 065
     Dates: start: 20210111, end: 20210903
  2. ACETAMINOPHEN [Concomitant]
     Active Substance: ACETAMINOPHEN
     Indication: Headache
     Dosage: 500 MILLIGRAM, BID
     Route: 048
     Dates: start: 20190101

REACTIONS (3)
  - Vomiting [Recovered/Resolved with Sequelae]
  - Intestinal obstruction [Unknown]
  - Liver abscess [Unknown]

NARRATIVE: CASE EVENT DATE: 20210101
